FAERS Safety Report 10020676 (Version 1)
Quarter: 2013Q4

REPORT INFORMATION
  Report Type: Spontaneous
  Country: BR (occurrence: None)
  Receive Date: 20131126
  Receipt Date: 20131126
  Transmission Date: 20140711
  Serious: Yes (Congenital Anomaly)
  Sender: FDA-Public Use
  Company Number: 2013HINSPO0243

PATIENT
  Age: 37 Week
  Sex: Male
  Weight: 2.9 kg

DRUGS (3)
  1. LAMIVUDINE + ZIDOVUDINE [Suspect]
     Indication: ANTIRETROVIRAL THERAPY
     Dosage: 2 TABS/CAP
     Route: 064
     Dates: start: 20110624
  2. NORVIR (RITONAVIR) [Concomitant]
  3. REYATAZ (ATAZANAVIR SULFATE) [Concomitant]

REACTIONS (1)
  - Cryptorchism [None]
